FAERS Safety Report 10096722 (Version 1)
Quarter: 2014Q2

REPORT INFORMATION
  Report Type: Report from Study
  Country: DE (occurrence: DE)
  Receive Date: 20140422
  Receipt Date: 20140422
  Transmission Date: 20141212
  Serious: Yes (Hospitalization)
  Sender: FDA-Public Use
  Company Number: PHHO2014DE005689

PATIENT
  Sex: 0

DRUGS (7)
  1. RAMIPRIL [Suspect]
     Indication: HYPERTENSION
     Dosage: 2.5 MG, ONCE/SINGLE
     Route: 048
     Dates: start: 20130621
  2. PROGRAF [Suspect]
     Indication: RENAL TRANSPLANT
     Dosage: 1 MG, BID
     Route: 048
     Dates: start: 20130905
  3. CELLCEPT [Suspect]
     Indication: RENAL TRANSPLANT
     Dosage: 100 MG, BID
     Route: 048
     Dates: start: 20130522
  4. PREDNISOLON [Concomitant]
     Indication: IMMUNOSUPPRESSANT DRUG THERAPY
     Dosage: 1 MG, ONCE/SINGLE
     Route: 048
     Dates: start: 20130715
  5. AMLODIPINE [Concomitant]
     Indication: HYPERTENSION
     Dosage: 2.5 MG, ONCE/SINGLE
     Route: 048
     Dates: start: 20130531
  6. METOPROLOL [Concomitant]
     Indication: HYPERTENSION
     Dosage: 23.75 MG, BID
     Route: 048
     Dates: start: 20140218
  7. VITAMIN D [Concomitant]
     Indication: HYPOVITAMINOSIS
     Dosage: 500 IE ONCE
     Route: 048
     Dates: start: 20131031

REACTIONS (1)
  - Obstructive airways disorder [Not Recovered/Not Resolved]
